FAERS Safety Report 17621034 (Version 1)
Quarter: 2020Q2

REPORT INFORMATION
  Report Type: Spontaneous
  Country: US (occurrence: US)
  Receive Date: 20200403
  Receipt Date: 20200403
  Transmission Date: 20200713
  Serious: No
  Sender: FDA-Public Use
  Company Number: US-TEVA-2020-US-1215226

PATIENT
  Age: 61 Year
  Sex: Male

DRUGS (1)
  1. DULOXETINE ACTAVIS [Suspect]
     Active Substance: DULOXETINE
     Route: 065

REACTIONS (2)
  - Product substitution issue [Unknown]
  - Drug ineffective [Unknown]
